FAERS Safety Report 26214744 (Version 1)
Quarter: 2025Q4

REPORT INFORMATION
  Report Type: Spontaneous
  Country: EU (occurrence: EU)
  Receive Date: 20251230
  Receipt Date: 20251230
  Transmission Date: 20260118
  Serious: Yes (Life-Threatening, Hospitalization)
  Sender: PFIZER
  Company Number: EU-GLAXOSMITHKLINE-BE2020GSK072443

PATIENT
  Age: 69 Year
  Sex: Female
  Weight: 73.5 kg

DRUGS (8)
  1. CARBOPLATIN [Suspect]
     Active Substance: CARBOPLATIN
     Indication: Ovarian cancer
     Dosage: 486 MG
     Route: 042
     Dates: start: 20200325, end: 20200415
  2. PACLITAXEL [Suspect]
     Active Substance: PACLITAXEL
     Indication: Ovarian cancer
     Dosage: 320 MG
     Route: 042
     Dates: start: 20200325, end: 20200325
  3. PACLITAXEL [Suspect]
     Active Substance: PACLITAXEL
     Dosage: 310 MG
     Route: 042
     Dates: start: 20200415, end: 20200415
  4. BEVACIZUMAB [Suspect]
     Active Substance: BEVACIZUMAB
     Indication: Ovarian cancer
     Dosage: 1102 MG
     Route: 042
     Dates: start: 20200416, end: 20200416
  5. PLACEBO [Suspect]
     Active Substance: PLACEBO
     Indication: Ovarian cancer
     Dosage: 500 MG
     Route: 042
     Dates: start: 20200415, end: 20200415
  6. GLUCOPHAGE [Concomitant]
     Active Substance: METFORMIN HYDROCHLORIDE
     Indication: Diabetes mellitus
     Dosage: 850 MG, QD
     Dates: start: 201405
  7. EZETIMIBE [Concomitant]
     Active Substance: EZETIMIBE
     Dosage: 10 MG, QD
     Dates: start: 201405
  8. INDAPAMIDE\PERINDOPRIL [Concomitant]
     Active Substance: INDAPAMIDE\PERINDOPRIL
     Indication: Hypertension
     Dosage: 5 MG, QD
     Dates: start: 20200324

REACTIONS (2)
  - Thrombocytopenia [Not Recovered/Not Resolved]
  - Blood glucose increased [Unknown]

NARRATIVE: CASE EVENT DATE: 20200427
